FAERS Safety Report 7061043-5 (Version None)
Quarter: 2010Q4

REPORT INFORMATION
  Report Type: 
  Country: None (occurrence: None)
  Receive Date: 20101026
  Receipt Date: 20101018
  Transmission Date: 20110411
  Serious: Yes (Other)
  Sender: FDA-Public Use
  Company Number: US-PFIZER INC-2010132731

PATIENT
  Sex: Female
  Weight: 48.073 kg

DRUGS (2)
  1. ESTRING [Suspect]
     Indication: VULVOVAGINAL DRYNESS
     Dosage: 2 MG, UNK
     Dates: start: 20080101
  2. ZANTAC [Concomitant]
     Indication: GASTROINTESTINAL DISORDER
     Dosage: 150 MG, 2X/DAY

REACTIONS (2)
  - CONDITION AGGRAVATED [None]
  - GASTROINTESTINAL DISORDER [None]
